FAERS Safety Report 19930452 (Version 1)
Quarter: 2021Q4

REPORT INFORMATION
  Report Type: Spontaneous
  Country: PL (occurrence: PL)
  Receive Date: 20211008
  Receipt Date: 20211008
  Transmission Date: 20220303
  Serious: Yes (Hospitalization)
  Sender: FDA-Public Use
  Company Number: PL-SA-SAC20211007000634

PATIENT
  Age: 8 Year
  Sex: Male

DRUGS (7)
  1. LEVOCETIRIZINE [Suspect]
     Active Substance: LEVOCETIRIZINE
     Indication: Rhinitis allergic
     Dosage: UNK
     Route: 045
  2. IBUPROFEN [Suspect]
     Active Substance: IBUPROFEN
     Indication: Upper respiratory tract infection
     Dosage: UNK
     Route: 065
  3. IBUPROFEN [Suspect]
     Active Substance: IBUPROFEN
     Indication: Pyrexia
  4. FLUCONAZOLE [Concomitant]
     Active Substance: FLUCONAZOLE
     Dosage: UNK
     Route: 065
  5. CARBOCYSTEINE [Concomitant]
     Active Substance: CARBOCYSTEINE
     Dosage: UNK
     Route: 065
  6. FLUTICASONE [Concomitant]
     Active Substance: FLUTICASONE
     Dosage: UNK
     Route: 065
  7. ACETAMINOPHEN [Concomitant]
     Active Substance: ACETAMINOPHEN
     Dosage: UNK
     Route: 065

REACTIONS (10)
  - Skin hyperpigmentation [Not Recovered/Not Resolved]
  - Skin discolouration [Recovered/Resolved]
  - Erythema [Recovered/Resolved]
  - Skin lesion [Recovered/Resolved]
  - Rash erythematous [Recovered/Resolved]
  - Condition aggravated [Recovered/Resolved]
  - Fixed eruption [Recovered/Resolved]
  - Drug eruption [Recovered/Resolved]
  - Rash macular [Recovered/Resolved]
  - Urticaria [Recovered/Resolved]
